FAERS Safety Report 5124924-5 (Version None)
Quarter: 2006Q4

REPORT INFORMATION
  Report Type: 
  Country: None (occurrence: None)
  Receive Date: 20061011
  Receipt Date: 20060411
  Transmission Date: 20070319
  Serious: Yes (Hospitalization)
  Sender: FDA-Public Use
  Company Number: US-BRISTOL-MYERS SQUIBB COMPANY-13344130

PATIENT
  Age: 69 Year
  Sex: Male

DRUGS (13)
  1. CISPLATIN [Suspect]
     Indication: LUNG NEOPLASM MALIGNANT
     Route: 041
     Dates: start: 20060321, end: 20060321
  2. TS-1 [Suspect]
     Indication: LUNG NEOPLASM MALIGNANT
     Route: 048
     Dates: start: 20060321
  3. COUMADIN [Concomitant]
  4. PERCOCET [Concomitant]
     Indication: PAIN
     Route: 048
     Dates: start: 20060201
  5. DILTIAZEM HCL [Concomitant]
  6. MS CONTIN [Concomitant]
     Indication: PAIN
     Route: 048
     Dates: start: 20060201
  7. COMBIVENT [Concomitant]
     Indication: CHRONIC OBSTRUCTIVE PULMONARY DISEASE
     Route: 055
     Dates: start: 20020101
  8. ADVAIR DISKUS 100/50 [Concomitant]
     Indication: CHRONIC OBSTRUCTIVE PULMONARY DISEASE
     Route: 055
     Dates: start: 20020101
  9. LOVENOX [Concomitant]
  10. CIPROFLOXACIN [Concomitant]
  11. FLAGYL [Concomitant]
  12. VANCOMYCIN [Concomitant]
  13. NEUPOGEN [Concomitant]
     Dates: end: 20060408

REACTIONS (3)
  - HYPONATRAEMIA [None]
  - ORAL INTAKE REDUCED [None]
  - PULMONARY EMBOLISM [None]
